FAERS Safety Report 12637004 (Version 6)
Quarter: 2019Q2

REPORT INFORMATION
  Report Type: Report from Study
  Country: JP (occurrence: JP)
  Receive Date: 20160809
  Receipt Date: 20190417
  Transmission Date: 20190711
  Serious: Yes (Hospitalization, Other)
  Sender: FDA-Public Use
  Company Number: JP-ASTELLAS-2009JP005038

PATIENT
  Age: 38 Year
  Sex: Female
  Weight: 52 kg

DRUGS (92)
  1. RINDERON [BETAMETHASONE] [Interacting]
     Active Substance: BETAMETHASONE
     Route: 048
     Dates: start: 20090101, end: 20090512
  2. PREDNISOLONE. [Concomitant]
     Active Substance: PREDNISOLONE
     Route: 048
     Dates: start: 20100911, end: 20100914
  3. PREDNISOLONE. [Concomitant]
     Active Substance: PREDNISOLONE
     Route: 048
     Dates: start: 20110427, end: 20110531
  4. PREDNISOLONE. [Concomitant]
     Active Substance: PREDNISOLONE
     Route: 048
     Dates: start: 20120120, end: 20120313
  5. PREDNISOLONE. [Concomitant]
     Active Substance: PREDNISOLONE
     Route: 048
     Dates: start: 20131011, end: 20131220
  6. ZANTAC [Concomitant]
     Active Substance: RANITIDINE HYDROCHLORIDE
     Indication: PROPHYLAXIS
     Route: 048
     Dates: start: 20080521
  7. FERROMIA                           /00023520/ [Concomitant]
     Indication: PROPHYLAXIS
  8. BENET [Concomitant]
     Active Substance: RISEDRONATE SODIUM
     Indication: PROPHYLAXIS
     Route: 048
     Dates: start: 20120321, end: 20141021
  9. GASMOTIN [Concomitant]
     Active Substance: MOSAPRIDE CITRATE
     Indication: PROPHYLAXIS
  10. BIOFERMIN                          /01617201/ [Concomitant]
     Active Substance: DIETARY SUPPLEMENT\PROBIOTICS
     Indication: PROPHYLAXIS
     Dosage: 3 TABLETS, ONCE DAILY
     Route: 048
     Dates: start: 20130823, end: 20140513
  11. LYRICA [Concomitant]
     Active Substance: PREGABALIN
     Indication: HYPOAESTHESIA
     Route: 048
     Dates: start: 20161027, end: 20161101
  12. METHYCOBAL [Concomitant]
     Active Substance: METHYLCOBALAMIN
     Route: 065
     Dates: start: 20160720
  13. TACROLIMUS. [Interacting]
     Active Substance: TACROLIMUS
     Route: 048
     Dates: start: 20120315, end: 20130521
  14. TACROLIMUS. [Interacting]
     Active Substance: TACROLIMUS
     Route: 048
     Dates: start: 20130522, end: 20150701
  15. RINDERON [BETAMETHASONE] [Interacting]
     Active Substance: BETAMETHASONE
     Route: 048
     Dates: start: 20081002, end: 20081231
  16. RINDERON [BETAMETHASONE] [Interacting]
     Active Substance: BETAMETHASONE
     Route: 048
     Dates: start: 20140514, end: 20140924
  17. PREDNISOLONE. [Concomitant]
     Active Substance: PREDNISOLONE
     Route: 048
     Dates: start: 20071226, end: 20080122
  18. PREDNISOLONE. [Concomitant]
     Active Substance: PREDNISOLONE
     Route: 048
     Dates: start: 20120717, end: 20120821
  19. PREDNISOLONE. [Concomitant]
     Active Substance: PREDNISOLONE
     Route: 048
     Dates: start: 20120919, end: 20121017
  20. METHYCOBAL [Concomitant]
     Active Substance: METHYLCOBALAMIN
     Indication: MONOCLONAL GAMMOPATHY
     Dosage: UNK UNK, UNKNOWN FREQ.
     Route: 065
  21. TACROLIMUS. [Suspect]
     Active Substance: TACROLIMUS
     Indication: LUPUS NEPHRITIS
     Route: 048
     Dates: start: 20071031, end: 20111025
  22. TACROLIMUS. [Interacting]
     Active Substance: TACROLIMUS
     Route: 048
     Dates: start: 20160914
  23. RINDERON [BETAMETHASONE] [Interacting]
     Active Substance: BETAMETHASONE
     Dosage: 0.93 MG, ONCE DAILY
     Route: 048
     Dates: start: 20090624, end: 20091006
  24. VOLTAREN [Suspect]
     Active Substance: DICLOFENAC SODIUM
     Indication: DYSMENORRHOEA
     Route: 048
     Dates: start: 20111207, end: 20121219
  25. PREDNISOLONE. [Concomitant]
     Active Substance: PREDNISOLONE
     Route: 048
     Dates: start: 20100929, end: 20101026
  26. PREDNISOLONE. [Concomitant]
     Active Substance: PREDNISOLONE
     Route: 048
     Dates: start: 20120321, end: 20120404
  27. PREDNISOLONE. [Concomitant]
     Active Substance: PREDNISOLONE
     Route: 048
     Dates: start: 20120405, end: 20120418
  28. PREDNISOLONE. [Concomitant]
     Active Substance: PREDNISOLONE
     Route: 048
     Dates: start: 20120822, end: 20120918
  29. PREDNISOLONE. [Concomitant]
     Active Substance: PREDNISOLONE
     Route: 048
     Dates: start: 20131003, end: 20131010
  30. ACINON [Concomitant]
     Active Substance: NIZATIDINE
     Indication: PRODUCT USED FOR UNKNOWN INDICATION
     Route: 048
     Dates: end: 20080520
  31. ZANTAC [Concomitant]
     Active Substance: RANITIDINE HYDROCHLORIDE
     Route: 048
     Dates: end: 20100727
  32. SLOW-FE [Concomitant]
     Active Substance: FERROUS SULFATE
     Indication: PRODUCT USED FOR UNKNOWN INDICATION
     Route: 048
     Dates: end: 20100914
  33. TAKEPRON [Concomitant]
     Active Substance: LANSOPRAZOLE
     Indication: PROPHYLAXIS
  34. ONEALFA [Concomitant]
     Active Substance: ALFACALCIDOL
     Indication: PRODUCT USED FOR UNKNOWN INDICATION
     Dosage: 1 UG, ONCE DAILY
     Route: 048
     Dates: end: 20120404
  35. ULGUT [Concomitant]
     Indication: PRODUCT USED FOR UNKNOWN INDICATION
     Route: 048
     Dates: end: 20130520
  36. TACROLIMUS. [Interacting]
     Active Substance: TACROLIMUS
     Route: 048
     Dates: start: 20111026, end: 20120222
  37. RINDERON [BETAMETHASONE] [Interacting]
     Active Substance: BETAMETHASONE
     Dosage: 0.86 MG, ONCE DAILY
     Route: 048
     Dates: start: 20091007, end: 20100309
  38. VOLTAREN [Suspect]
     Active Substance: DICLOFENAC SODIUM
     Indication: PROPHYLAXIS
  39. PREDNISOLONE. [Concomitant]
     Active Substance: PREDNISOLONE
     Indication: MONOCLONAL GAMMOPATHY
     Dosage: UNK UNK, UNKNOWN FREQ.
     Route: 065
  40. PREDNISOLONE. [Concomitant]
     Active Substance: PREDNISOLONE
     Route: 048
     Dates: start: 20080325, end: 20080520
  41. PREDNISOLONE. [Concomitant]
     Active Substance: PREDNISOLONE
     Route: 048
     Dates: start: 20101124, end: 20110322
  42. PREDNISOLONE. [Concomitant]
     Active Substance: PREDNISOLONE
     Route: 048
     Dates: start: 20110722, end: 20120119
  43. PREDNISOLONE. [Concomitant]
     Active Substance: PREDNISOLONE
     Route: 048
     Dates: start: 20120419, end: 20120424
  44. PREDNISOLONE. [Concomitant]
     Active Substance: PREDNISOLONE
     Route: 048
     Dates: start: 20131221, end: 20140131
  45. PREDNISOLONE. [Concomitant]
     Active Substance: PREDNISOLONE
     Route: 048
     Dates: start: 20140201, end: 20140219
  46. PREDNISOLONE. [Concomitant]
     Active Substance: PREDNISOLONE
     Route: 048
     Dates: start: 20140220, end: 20140513
  47. ISODINE [Concomitant]
     Active Substance: POVIDONE-IODINE
     Indication: PRODUCT USED FOR UNKNOWN INDICATION
     Route: 061
     Dates: end: 20080123
  48. COMELIAN [Concomitant]
     Active Substance: DILAZEP
     Indication: LUPUS NEPHRITIS
     Route: 048
     Dates: end: 20080416
  49. FERROMIA                           /00023520/ [Concomitant]
     Indication: MENORRHAGIA
     Route: 048
     Dates: start: 20110223, end: 20150331
  50. NEXIUM [Concomitant]
     Active Substance: ESOMEPRAZOLE MAGNESIUM
     Indication: PROPHYLAXIS
  51. TRAMCET [Concomitant]
     Active Substance: ACETAMINOPHEN\TRAMADOL
     Indication: BACK PAIN
     Route: 048
     Dates: start: 20130814, end: 20140730
  52. LYRICA [Concomitant]
     Active Substance: PREGABALIN
     Route: 048
     Dates: start: 20161102
  53. CYMBALTA [Concomitant]
     Active Substance: DULOXETINE HYDROCHLORIDE
     Dosage: TAPERING, UNKNOWN FREQ.
  54. RINDERON [BETAMETHASONE] [Interacting]
     Active Substance: BETAMETHASONE
     Route: 048
     Dates: start: 20080703, end: 20080903
  55. RINDERON [BETAMETHASONE] [Interacting]
     Active Substance: BETAMETHASONE
     Dosage: 0.71 MG, ONCE DAILY
     Route: 048
     Dates: start: 20100310, end: 20100601
  56. RINDERON [BETAMETHASONE] [Interacting]
     Active Substance: BETAMETHASONE
     Route: 048
     Dates: start: 20150525
  57. PREDNISOLONE. [Concomitant]
     Active Substance: PREDNISOLONE
     Route: 048
     Dates: start: 20071128, end: 20071225
  58. PREDNISOLONE. [Concomitant]
     Active Substance: PREDNISOLONE
     Route: 048
     Dates: start: 20080123, end: 20080324
  59. PREDNISOLONE. [Concomitant]
     Active Substance: PREDNISOLONE
     Route: 048
     Dates: start: 20100602, end: 20100910
  60. PREDNISOLONE. [Concomitant]
     Active Substance: PREDNISOLONE
     Route: 048
     Dates: start: 20101027, end: 20101109
  61. PREDNISOLONE. [Concomitant]
     Active Substance: PREDNISOLONE
     Route: 048
     Dates: start: 20120314, end: 20120320
  62. PREDNISOLONE. [Concomitant]
     Active Substance: PREDNISOLONE
     Route: 048
     Dates: start: 20120524, end: 20120605
  63. PREDNISOLONE. [Concomitant]
     Active Substance: PREDNISOLONE
     Dosage: UNK UNK, UNKNOWN FREQ.
     Route: 048
  64. CYMBALTA [Concomitant]
     Active Substance: DULOXETINE HYDROCHLORIDE
     Indication: MONOCLONAL GAMMOPATHY
     Dosage: UNK UNK, UNKNOWN FREQ.
     Route: 065
  65. TACROLIMUS. [Interacting]
     Active Substance: TACROLIMUS
     Dates: start: 20160907, end: 20160913
  66. RINDERON [BETAMETHASONE] [Interacting]
     Active Substance: BETAMETHASONE
     Route: 048
     Dates: start: 20080904, end: 20081001
  67. RINDERON [BETAMETHASONE] [Interacting]
     Active Substance: BETAMETHASONE
     Route: 048
     Dates: start: 20090513, end: 20090623
  68. PREDNISOLONE. [Concomitant]
     Active Substance: PREDNISOLONE
     Indication: LUPUS NEPHRITIS
     Route: 048
     Dates: end: 20071127
  69. PREDNISOLONE. [Concomitant]
     Active Substance: PREDNISOLONE
     Route: 048
     Dates: start: 20100915, end: 20100928
  70. PREDNISOLONE. [Concomitant]
     Active Substance: PREDNISOLONE
     Route: 048
     Dates: start: 20110323, end: 20110426
  71. PREDNISOLONE. [Concomitant]
     Active Substance: PREDNISOLONE
     Route: 048
     Dates: start: 20160907
  72. COMELIAN [Concomitant]
     Active Substance: DILAZEP
     Route: 048
     Dates: start: 20080417, end: 20100907
  73. TAKEPRON [Concomitant]
     Active Substance: LANSOPRAZOLE
     Indication: GASTROOESOPHAGEAL REFLUX DISEASE
     Route: 048
     Dates: start: 20120120, end: 20120417
  74. IMURAN [Concomitant]
     Active Substance: AZATHIOPRINE
     Indication: LUPUS NEPHRITIS
     Route: 048
     Dates: start: 20120222, end: 20120314
  75. BENET [Concomitant]
     Active Substance: RISEDRONATE SODIUM
     Route: 048
     Dates: start: 20141022
  76. EDIROL [Concomitant]
     Active Substance: ELDECALCITOL
     Indication: PRODUCT USED FOR UNKNOWN INDICATION
     Dosage: 0.75 ?G, ONCE DAILY
     Route: 048
     Dates: start: 20120405
  77. PARIET [Concomitant]
     Active Substance: RABEPRAZOLE SODIUM
     Indication: GASTROOESOPHAGEAL REFLUX DISEASE
     Route: 048
     Dates: start: 20120418, end: 20120717
  78. RINDERON [BETAMETHASONE] [Interacting]
     Active Substance: BETAMETHASONE
     Route: 048
     Dates: start: 20080605, end: 20080702
  79. RINDERON [BETAMETHASONE] [Interacting]
     Active Substance: BETAMETHASONE
     Route: 048
     Dates: start: 20140925, end: 20150524
  80. PREDNISOLONE. [Concomitant]
     Active Substance: PREDNISOLONE
     Route: 048
     Dates: start: 20101110, end: 20101123
  81. PREDNISOLONE. [Concomitant]
     Active Substance: PREDNISOLONE
     Route: 048
     Dates: start: 20120606, end: 20120716
  82. PREDNISOLONE. [Concomitant]
     Active Substance: PREDNISOLONE
     Route: 048
     Dates: start: 20121018, end: 20131002
  83. ISODINE [Concomitant]
     Active Substance: POVIDONE-IODINE
     Dosage: UNK UNK, UNKNOWN FREQ.
     Route: 061
     Dates: start: 20080220, end: 20101026
  84. RINDERON [BETAMETHASONE] [Interacting]
     Active Substance: BETAMETHASONE
     Indication: LUPUS NEPHRITIS
     Route: 048
     Dates: start: 20080521, end: 20080604
  85. PREDNISOLONE. [Concomitant]
     Active Substance: PREDNISOLONE
     Route: 048
     Dates: start: 20110601, end: 20110721
  86. PREDNISOLONE. [Concomitant]
     Active Substance: PREDNISOLONE
     Route: 048
     Dates: start: 20120425, end: 20120523
  87. GASMOTIN [Concomitant]
     Active Substance: MOSAPRIDE CITRATE
     Indication: ABDOMINAL PAIN UPPER
     Route: 048
     Dates: start: 20120425, end: 20130515
  88. NEXIUM [Concomitant]
     Active Substance: ESOMEPRAZOLE MAGNESIUM
     Indication: GASTROOESOPHAGEAL REFLUX DISEASE
     Route: 048
     Dates: start: 20120718
  89. MICARDIS [Concomitant]
     Active Substance: TELMISARTAN
     Indication: HYPERTENSION
     Route: 048
     Dates: start: 20140219
  90. LYRICA [Concomitant]
     Active Substance: PREGABALIN
     Indication: MONOCLONAL GAMMOPATHY
     Dosage: UNK UNK, UNKNOWN FREQ.
     Route: 065
  91. LYRICA [Concomitant]
     Active Substance: PREGABALIN
     Indication: HYPOAESTHESIA
     Route: 048
     Dates: start: 20151009, end: 20151103
  92. TACROLIMUS. [Interacting]
     Active Substance: TACROLIMUS
     Route: 048
     Dates: start: 20160817, end: 20160906

REACTIONS (16)
  - Cataract [Recovered/Resolved]
  - Hepatic artery aneurysm [Recovered/Resolved]
  - Drug interaction [Unknown]
  - DNA antibody positive [Recovering/Resolving]
  - Diarrhoea [Recovered/Resolved]
  - Hypoaesthesia [Recovering/Resolving]
  - Malaise [Recovered/Resolved]
  - Anaemia [Recovered/Resolved]
  - Abdominal pain upper [Recovering/Resolving]
  - Gastrooesophageal reflux disease [Recovering/Resolving]
  - Nephritis [Recovered/Resolved]
  - Dysmenorrhoea [Recovering/Resolving]
  - Thirst [Recovering/Resolving]
  - Menorrhagia [Recovered/Resolved]
  - Monoclonal gammopathy [Not Recovered/Not Resolved]
  - Back pain [Recovering/Resolving]

NARRATIVE: CASE EVENT DATE: 20080521
